FAERS Safety Report 8283925-9 (Version None)
Quarter: 2012Q2

REPORT INFORMATION
  Report Type: 
  Country: None (occurrence: None)
  Receive Date: 20120413
  Receipt Date: 20120405
  Transmission Date: 20120825
  Serious: Yes (Hospitalization)
  Sender: FDA-Public Use
  Company Number: US-B.I. PHARMACEUTICALS,INC./RIDGEFIELD-2011-BP-00260BP

PATIENT
  Sex: Male

DRUGS (12)
  1. SPIRIVA [Suspect]
     Dosage: 18 MCG
     Route: 055
     Dates: start: 20050101, end: 20101215
  2. FEXOFENADINE [Concomitant]
     Indication: HYPERSENSITIVITY
     Dosage: 180 MG
     Route: 048
  3. GLUCOSAMINE CHONDROITIN [Concomitant]
     Indication: ARTHRITIS
  4. LOVAZA [Concomitant]
     Indication: SUPPLEMENTATION THERAPY
     Dates: start: 20080101
  5. FLOMAX [Suspect]
     Indication: PROSTATIC DISORDER
     Dosage: 4 MG
     Route: 048
  6. PROVENTIL [Concomitant]
     Indication: CHRONIC OBSTRUCTIVE PULMONARY DISEASE
     Dosage: IH, ONE PUFF QAM
     Route: 055
  7. ADVAIR DISKUS 100/50 [Concomitant]
     Indication: CHRONIC OBSTRUCTIVE PULMONARY DISEASE
     Route: 055
     Dates: start: 20110101
  8. PROAIR HFA [Concomitant]
     Indication: CHRONIC OBSTRUCTIVE PULMONARY DISEASE
     Route: 055
  9. ALLEGRA [Concomitant]
     Indication: RHINITIS ALLERGIC
  10. FOLIC ACID [Concomitant]
     Dosage: 1 MG
     Route: 048
  11. RITE-AID BRAND STOOL SOFTENER [Concomitant]
     Indication: FAECES HARD
     Dosage: 1 Q DAY
  12. SPIRIVA [Suspect]
     Indication: CHRONIC OBSTRUCTIVE PULMONARY DISEASE
     Dosage: 18 MCG
     Route: 055
     Dates: start: 20110104

REACTIONS (16)
  - HAEMORRHAGE [None]
  - MACULAR DEGENERATION [None]
  - GASTROOESOPHAGEAL REFLUX DISEASE [None]
  - ROSACEA [None]
  - ANAEMIA [None]
  - GLAUCOMA [None]
  - SWELLING FACE [None]
  - OSTEOPOROSIS [None]
  - VISION BLURRED [None]
  - RASH [None]
  - DYSPNOEA [None]
  - VISUAL ACUITY REDUCED [None]
  - DYSURIA [None]
  - DIVERTICULUM [None]
  - CONSTIPATION [None]
  - OEDEMA MOUTH [None]
